FAERS Safety Report 10239610 (Version 1)
Quarter: 2014Q2

REPORT INFORMATION
  Report Type: Spontaneous
  Country: FR (occurrence: FR)
  Receive Date: 20140616
  Receipt Date: 20140616
  Transmission Date: 20141212
  Serious: Yes (Other)
  Sender: FDA-Public Use
  Company Number: FR-TEVA-488058ISR

PATIENT
  Sex: 0

DRUGS (3)
  1. DOXORUBICIN 2MG/ML [Suspect]
     Indication: HEPATOCELLULAR CARCINOMA
     Dosage: 2 MG/ML, {=50MG PER COURSE
     Route: 013
  2. VISIPAQUE 270MG 1/ML [Concomitant]
     Indication: HEPATOCELLULAR CARCINOMA
     Dosage: 270 MG/ML, {=20ML PER COURSE
     Route: 013
  3. ROCEPHINE [Concomitant]
     Indication: ANTIBIOTIC PROPHYLAXIS
     Dosage: 1 G/DAY FOR 5 DAYS, STARTING ON THE DAY OF TRANSARTERIAL CHEMOEMBOLISATION
     Route: 065

REACTIONS (1)
  - Vascular pseudoaneurysm [Recovered/Resolved]
